FAERS Safety Report 20565348 (Version 11)
Quarter: 2023Q4

REPORT INFORMATION
  Report Type: Report from Study
  Country: DE (occurrence: DE)
  Receive Date: 20220308
  Receipt Date: 20231201
  Transmission Date: 20240109
  Serious: Yes (Hospitalization)
  Sender: FDA-Public Use
  Company Number: DE-SA-SAC20220221001046

PATIENT
  Age: 81 Year
  Sex: Male
  Weight: 79 kg

DRUGS (6)
  1. DEXAMETHASONE [Suspect]
     Active Substance: DEXAMETHASONE
     Indication: Plasma cell myeloma
     Dosage: 40 MG, QW
     Route: 065
     Dates: start: 20220110, end: 20220131
  2. DEXAMETHASONE [Suspect]
     Active Substance: DEXAMETHASONE
     Dosage: 20 MG, QW
     Route: 065
     Dates: start: 20220207, end: 20220215
  3. ISATUXIMAB [Suspect]
     Active Substance: ISATUXIMAB
     Indication: Plasma cell myeloma refractory
     Dosage: 10 MG/KG, QW
     Route: 065
     Dates: start: 20220110, end: 20220131
  4. ISATUXIMAB [Suspect]
     Active Substance: ISATUXIMAB
     Dosage: 10 MG/KG, QOW
     Route: 065
     Dates: start: 20220207, end: 20220215
  5. CARFILZOMIB [Suspect]
     Active Substance: CARFILZOMIB
     Indication: Plasma cell myeloma
     Dosage: 30 MG, QW
     Route: 065
     Dates: start: 20220207, end: 20220215
  6. CARFILZOMIB [Suspect]
     Active Substance: CARFILZOMIB
     Dosage: 39 MG, QW, START DATE: 10/JAN/2022;13:00
     Route: 065
     Dates: start: 20220110, end: 20220118

REACTIONS (3)
  - Bronchitis [Recovered/Resolved]
  - Chest discomfort [Recovered/Resolved]
  - Fall [Recovered/Resolved]

NARRATIVE: CASE EVENT DATE: 20220117
